FAERS Safety Report 16673509 (Version 3)
Quarter: 2019Q3

REPORT INFORMATION
  Report Type: Report from Study
  Country: CO (occurrence: CO)
  Receive Date: 20190806
  Receipt Date: 20190918
  Transmission Date: 20191004
  Serious: Yes (Hospitalization, Other)
  Sender: FDA-Public Use
  Company Number: CO-SA-2017SA214071

PATIENT
  Age: 54 Year
  Sex: Male

DRUGS (1)
  1. ALEMTUZUMAB [Suspect]
     Active Substance: ALEMTUZUMAB
     Indication: MULTIPLE SCLEROSIS
     Dosage: 12 MG,QD
     Route: 041
     Dates: start: 20170927, end: 20170929

REACTIONS (16)
  - Thrombocytopenia [Recovered/Resolved]
  - Crystal urine present [Recovered/Resolved]
  - Haematocrit decreased [Recovered/Resolved]
  - Blood thyroid stimulating hormone increased [Unknown]
  - Lymphocyte count decreased [Recovered/Resolved]
  - Mean cell haemoglobin concentration decreased [Recovered/Resolved]
  - Mean cell volume decreased [Recovered/Resolved]
  - Haemoglobin decreased [Recovered/Resolved]
  - Mean cell haemoglobin decreased [Recovered/Resolved]
  - Blood creatinine increased [Recovered/Resolved]
  - Platelet count decreased [Recovered/Resolved]
  - Fatigue [Recovering/Resolving]
  - Red blood cell elliptocytes present [Recovered/Resolved]
  - Platelet morphology abnormal [Recovered/Resolved]
  - Red blood cell count decreased [Recovered/Resolved]
  - Conjunctivitis [Not Recovered/Not Resolved]

NARRATIVE: CASE EVENT DATE: 20171030
